FAERS Safety Report 22115944 (Version 1)
Quarter: 2023Q1

REPORT INFORMATION
  Report Type: Spontaneous
  Country: US (occurrence: US)
  Receive Date: 20230320
  Receipt Date: 20230320
  Transmission Date: 20230417
  Serious: Yes (Hospitalization, Other)
  Sender: FDA-Public Use
  Company Number: US-drreddys-SPO/USA/23/0162377

PATIENT
  Age: 16 Year
  Sex: Female

DRUGS (4)
  1. LORAZEPAM [Suspect]
     Active Substance: LORAZEPAM
     Indication: Catatonia
     Route: 030
  2. LORAZEPAM [Suspect]
     Active Substance: LORAZEPAM
     Route: 030
  3. ZYDIS [Concomitant]
     Indication: Catatonia
     Dosage: AT BED TIME
  4. ZYDIS [Concomitant]
     Dosage: AT BED TIME

REACTIONS (2)
  - Hypotension [Recovered/Resolved]
  - Product use in unapproved indication [Unknown]
